FAERS Safety Report 19356891 (Version 1)
Quarter: 2021Q2

REPORT INFORMATION
  Report Type: Spontaneous
  Country: US (occurrence: US)
  Receive Date: 20210602
  Receipt Date: 20210602
  Transmission Date: 20210717
  Serious: Yes (Death)
  Sender: FDA-Public Use
  Company Number: None

PATIENT
  Sex: Male

DRUGS (10)
  1. PREDNISOLONE SUS 1% OP [Concomitant]
     Dates: start: 20210420
  2. HUMIRA [Suspect]
     Active Substance: ADALIMUMAB
     Indication: RHEUMATOID ARTHRITIS
     Dosage: ?          OTHER FREQUENCY:EVERY WEEK;?
     Route: 058
  3. FENTANYL DIS 75MCG/HR [Concomitant]
     Dates: start: 20210525
  4. FAMOTIDINE TAB 20MG [Concomitant]
     Dates: start: 20210505
  5. OXYCOD/APAP TAB 10?325MG [Concomitant]
     Active Substance: ACETAMINOPHEN\OXYCODONE HYDROCHLORIDE
     Dates: start: 20210520
  6. HALOPERIDOL CON 2MG/ML [Concomitant]
     Dates: start: 20210525
  7. PANTOPRAZOLE TAB 40MG [Concomitant]
     Dates: start: 20210505
  8. BISACODYL SUP 10MG [Concomitant]
     Dates: start: 20210525
  9. DEXAMETHASON TAB 4MG [Concomitant]
     Active Substance: DEXAMETHASONE
     Dates: start: 20210525
  10. FUROSEMIDE TAB 20MG [Concomitant]
     Dates: start: 20210524

REACTIONS (1)
  - Death [None]
